FAERS Safety Report 7163962-8 (Version None)
Quarter: 2010Q4

REPORT INFORMATION
  Report Type: 
  Country: None (occurrence: None)
  Receive Date: 20101215
  Receipt Date: 20101201
  Transmission Date: 20110411
  Serious: Yes (Hospitalization, Congenital Anomaly)
  Sender: FDA-Public Use
  Company Number: A0681156A

PATIENT
  Sex: Male
  Weight: 1.6 kg

DRUGS (2)
  1. PAXIL [Suspect]
     Indication: DEPRESSION
     Dates: start: 20020401, end: 20021201
  2. PRENATAL VITAMINS [Concomitant]

REACTIONS (5)
  - CONGENITAL ABDOMINAL HERNIA [None]
  - DIGEORGE'S SYNDROME [None]
  - DRUG EXPOSURE DURING PREGNANCY [None]
  - EXOMPHALOS [None]
  - FALLOT'S TETRALOGY [None]
